FAERS Safety Report 11686029 (Version 1)
Quarter: 2015Q4

REPORT INFORMATION
  Report Type: Report from Study
  Country: US (occurrence: US)
  Receive Date: 20151030
  Receipt Date: 20151030
  Transmission Date: 20160304
  Serious: Yes (Other)
  Sender: FDA-Public Use
  Company Number: US-AMGEN-USASL2015112720

PATIENT
  Age: 64 Year
  Sex: Female

DRUGS (1)
  1. PROLIA [Suspect]
     Active Substance: DENOSUMAB
     Indication: OSTEOPOROSIS
     Dosage: 60 MG, Q6MO
     Route: 058
     Dates: start: 20141105

REACTIONS (13)
  - Upper limb fracture [Unknown]
  - Arthralgia [Unknown]
  - Impaired healing [Unknown]
  - Pain in extremity [Unknown]
  - Back pain [Unknown]
  - Staphylococcal infection [Not Recovered/Not Resolved]
  - Gingival disorder [Unknown]
  - Dyspnoea [Unknown]
  - Humerus fracture [Unknown]
  - Immune system disorder [Unknown]
  - Fall [Unknown]
  - Articular calcification [Unknown]
  - Bone pain [Unknown]

NARRATIVE: CASE EVENT DATE: 201505
